FAERS Safety Report 9837759 (Version 1)
Quarter: 2014Q1

REPORT INFORMATION
  Report Type: Spontaneous
  Country: US (occurrence: US)
  Receive Date: 20140123
  Receipt Date: 20140123
  Transmission Date: 20141002
  Serious: Yes (Other)
  Sender: FDA-Public Use
  Company Number: US-BAYER-2014-008383

PATIENT
  Age: 41 Year
  Sex: Female
  Weight: 181 kg

DRUGS (4)
  1. ALKA-SELTZER PLUS ORANGE ZEST COLD FORMULA [Suspect]
     Dosage: 2 TABLETS
     Route: 048
     Dates: start: 20140114
  2. DEPAKOTE [Concomitant]
     Indication: DEPRESSION
  3. SEROQUEL [Concomitant]
     Indication: DEPRESSION
  4. THERAFLU [Concomitant]

REACTIONS (6)
  - Pneumonia [None]
  - Pyrexia [None]
  - Nausea [None]
  - Cough [None]
  - Chest discomfort [None]
  - Inappropriate schedule of drug administration [None]
